FAERS Safety Report 7338144-7 (Version None)
Quarter: 2011Q1

REPORT INFORMATION
  Report Type: 
  Country: None (occurrence: None)
  Receive Date: 20110308
  Receipt Date: 20110223
  Transmission Date: 20110831
  Serious: Yes (Hospitalization)
  Sender: FDA-Public Use
  Company Number: FR-ELI_LILLY_AND_COMPANY-FR201103000170

PATIENT
  Sex: Female

DRUGS (7)
  1. SERESTA [Concomitant]
     Dosage: 10 MG, DAILY (1/D)
     Dates: start: 20090415
  2. CYMBALTA [Suspect]
     Dosage: 60 MG, DAILY (1/D)
     Route: 048
     Dates: start: 20090101, end: 20090421
  3. SERESTA [Concomitant]
     Dosage: UNK, UNKNOWN
  4. EXELON [Concomitant]
     Dosage: UNK, UNKNOWN
     Route: 062
     Dates: end: 20090415
  5. MODOPAR [Concomitant]
     Dates: start: 20090415
  6. SINEMET [Concomitant]
     Dosage: UNK, UNKNOWN
     Route: 048
     Dates: end: 20090415
  7. IMOVANE [Concomitant]

REACTIONS (8)
  - DYSKINESIA [None]
  - DISORIENTATION [None]
  - FALL [None]
  - VERTIGO [None]
  - HYPOTONIA [None]
  - ABNORMAL BEHAVIOUR [None]
  - GAIT DISTURBANCE [None]
  - INJURY [None]
